FAERS Safety Report 23256061 (Version 1)
Quarter: 2023Q4

REPORT INFORMATION
  Report Type: Spontaneous
  Country: IL (occurrence: IL)
  Receive Date: 20231204
  Receipt Date: 20231204
  Transmission Date: 20240110
  Serious: Yes (Life-Threatening, Hospitalization, Other)
  Sender: FDA-Public Use
  Company Number: IL-TWI PHARMACEUTICAL, INC-2023SCTW000072

PATIENT

DRUGS (1)
  1. NAPRELAN [Suspect]
     Active Substance: NAPROXEN SODIUM
     Indication: Peripheral swelling
     Dosage: 500 MG
     Route: 065

REACTIONS (2)
  - Purpura fulminans [Recovering/Resolving]
  - Henoch-Schonlein purpura [Recovering/Resolving]
